FAERS Safety Report 13087268 (Version 2)
Quarter: 2017Q1

REPORT INFORMATION
  Report Type: Report from Study
  Country: US (occurrence: US)
  Receive Date: 20170105
  Receipt Date: 20170202
  Transmission Date: 20170428
  Serious: Yes (Death)
  Sender: FDA-Public Use
  Company Number: US-ROCHE-1874812

PATIENT
  Sex: Female

DRUGS (5)
  1. AVASTIN [Suspect]
     Active Substance: BEVACIZUMAB
     Indication: COLON CANCER
     Route: 042
     Dates: start: 20151229
  2. AVASTIN [Suspect]
     Active Substance: BEVACIZUMAB
     Indication: LUNG NEOPLASM MALIGNANT
  3. 5-FLUOROURACIL [Concomitant]
     Active Substance: FLUOROURACIL
  4. LEUCOVORIN. [Concomitant]
     Active Substance: LEUCOVORIN
  5. OXALIPLATIN. [Concomitant]
     Active Substance: OXALIPLATIN

REACTIONS (1)
  - Death [Fatal]
